FAERS Safety Report 9565663 (Version 1)
Quarter: 2013Q3

REPORT INFORMATION
  Report Type: Spontaneous
  Country: IR (occurrence: IR)
  Receive Date: 20130930
  Receipt Date: 20130930
  Transmission Date: 20140515
  Serious: Yes (Hospitalization, Other)
  Sender: FDA-Public Use
  Company Number: IR-ROXANE LABORATORIES, INC.-2013-RO-01594RO

PATIENT
  Age: 27 Year
  Sex: Female

DRUGS (3)
  1. CITALOPRAM [Suspect]
     Indication: PANIC ATTACK
     Dosage: 20 MG
  2. RIFAMPIN [Suspect]
     Indication: BRUCELLOSIS
     Dosage: 600 MG
     Route: 048
  3. DOXYCYCLINE [Suspect]
     Indication: BRUCELLOSIS
     Dosage: 200 MG
     Route: 048

REACTIONS (3)
  - Brucellosis [Unknown]
  - Panic attack [Recovered/Resolved]
  - Drug interaction [Recovered/Resolved]
